FAERS Safety Report 14904255 (Version 1)
Quarter: 2018Q2

REPORT INFORMATION
  Report Type: Spontaneous
  Country: US (occurrence: US)
  Receive Date: 20180516
  Receipt Date: 20180516
  Transmission Date: 20180711
  Serious: No
  Sender: FDA-Public Use
  Company Number: US-CELGENEUS-USA-20180503015

PATIENT
  Age: 81 Year
  Sex: Female

DRUGS (1)
  1. OTEZLA [Suspect]
     Active Substance: APREMILAST
     Indication: PRODUCT USED FOR UNKNOWN INDICATION
     Dosage: 30 MILLIGRAM
     Route: 048
     Dates: start: 20180507

REACTIONS (5)
  - Headache [Unknown]
  - Unevaluable event [Unknown]
  - Feeling jittery [Unknown]
  - Multiple allergies [Unknown]
  - Nausea [Unknown]

NARRATIVE: CASE EVENT DATE: 20180507
